FAERS Safety Report 7045544-1 (Version None)
Quarter: 2010Q3

REPORT INFORMATION
  Report Type: 
  Country: None (occurrence: None)
  Receive Date: 20100929
  Receipt Date: 20100720
  Transmission Date: 20110219
  Serious: No
  Sender: FDA-Public Use
  Company Number: US-WYE-H16641410

PATIENT
  Age: 67 Year
  Sex: Female
  Weight: 54.03 kg

DRUGS (8)
  1. PRISTIQ [Suspect]
     Indication: ANXIETY
     Dosage: ^THE PINK SQUARE SHAPED PILLS^ ONCE DAILY
     Dates: start: 20100713
  2. PRISTIQ [Suspect]
     Indication: DEPRESSION
     Dosage: ^THE PINK SQUARE SHAPED PILLS^ ONCE DAILY
     Dates: start: 20100713
  3. ACYCLOVIR [Concomitant]
  4. SYNTHROID [Concomitant]
  5. LORAZEPAM [Concomitant]
  6. PROTONIX [Concomitant]
  7. MULTI-VITAMINS [Concomitant]
  8. AMBIEN [Concomitant]

REACTIONS (5)
  - CONSTIPATION [None]
  - HEADACHE [None]
  - MYDRIASIS [None]
  - NAUSEA [None]
  - VISION BLURRED [None]
